FAERS Safety Report 4295900-X (Version None)
Quarter: 2004Q1

REPORT INFORMATION
  Report Type: 
  Country: None (occurrence: None)
  Receive Date: 20040216
  Receipt Date: 20031203
  Transmission Date: 20041129
  Serious: Yes (Other)
  Sender: FDA-Public Use
  Company Number: US-GLAXOSMITHKLINE-A0441755A

PATIENT
  Age: 22 Year
  Sex: Female

DRUGS (3)
  1. LAMICTAL [Suspect]
     Indication: BIPOLAR DISORDER
     Dosage: 75MG TWICE PER DAY
     Route: 048
     Dates: start: 20030101
  2. DEPAKOTE [Concomitant]
     Dosage: 1000MG PER DAY
  3. ABILIFY [Concomitant]

REACTIONS (5)
  - ALOPECIA [None]
  - MANIA [None]
  - MOUTH ULCERATION [None]
  - POLYURIA [None]
  - SUICIDE ATTEMPT [None]
